FAERS Safety Report 19057479 (Version 2)
Quarter: 2021Q2

REPORT INFORMATION
  Report Type: Spontaneous
  Country: US (occurrence: US)
  Receive Date: 20210324
  Receipt Date: 20210615
  Transmission Date: 20210717
  Serious: No
  Sender: FDA-Public Use
  Company Number: US-PFIZER INC-2021242518

PATIENT
  Age: 59 Year
  Sex: Male

DRUGS (2)
  1. INLYTA [Suspect]
     Active Substance: AXITINIB
     Dosage: 5 MG, UNK
     Dates: start: 20210301
  2. INLYTA [Suspect]
     Active Substance: AXITINIB
     Dosage: 5 MG, UNK
     Dates: start: 20210216, end: 20210223

REACTIONS (13)
  - Oral pain [Unknown]
  - Speech disorder [Recovered/Resolved]
  - Myalgia [Unknown]
  - Alopecia [Unknown]
  - Stomatitis [Recovered/Resolved]
  - Eating disorder [Unknown]
  - Mastication disorder [Unknown]
  - Arthralgia [Unknown]
  - Gait disturbance [Unknown]
  - Pain [Recovered/Resolved]
  - Glossodynia [Recovering/Resolving]
  - Pyrexia [Unknown]
  - Diarrhoea [Unknown]

NARRATIVE: CASE EVENT DATE: 20210225
